FAERS Safety Report 8409554-1 (Version None)
Quarter: 2012Q2

REPORT INFORMATION
  Report Type: 
  Country: None (occurrence: None)
  Receive Date: 20120531
  Receipt Date: 20120531
  Transmission Date: 20120825
  Serious: Yes (Other)
  Sender: FDA-Public Use
  Company Number: None

PATIENT
  Age: 84 Year
  Sex: Male
  Weight: 68.0396 kg

DRUGS (1)
  1. PREFERRED PLUS ANTACID ANTI GAS 200 MG MAGNESIUM HYDROXIDE, 20 MG SIME [Suspect]
     Indication: HYPERCHLORHYDRIA
     Dosage: 2-4 TEASPOONS Q8H 047
     Route: 048
     Dates: start: 20120428

REACTIONS (4)
  - ABDOMINAL PAIN UPPER [None]
  - DYSPEPSIA [None]
  - GLOSSODYNIA [None]
  - DYSGEUSIA [None]
